FAERS Safety Report 5610939-7 (Version None)
Quarter: 2008Q1

REPORT INFORMATION
  Report Type: 
  Country: None (occurrence: None)
  Receive Date: 20080128
  Receipt Date: 20080123
  Transmission Date: 20080703
  Serious: Yes (Hospitalization)
  Sender: FDA-Public Use
  Company Number: 2008-00094

PATIENT
  Age: 56 Year
  Sex: Male
  Weight: 86.2 kg

DRUGS (2)
  1. VELCADE [Suspect]
     Indication: SQUAMOUS CELL CARCINOMA
     Dosage: 1.30 MG/M2, IV BOLUS
     Route: 040
     Dates: start: 20071217, end: 20071227
  2. IRINOTECAN HCL [Suspect]
     Indication: SQUAMOUS CELL CARCINOMA
     Dosage: 125.00 MG/M2, INTRAVENOUS
     Route: 042
     Dates: start: 20071217, end: 20071224

REACTIONS (9)
  - CATHETER SITE CELLULITIS [None]
  - CATHETER SITE INFECTION [None]
  - DEHYDRATION [None]
  - DIARRHOEA [None]
  - KLEBSIELLA INFECTION [None]
  - NAUSEA [None]
  - RENAL FAILURE [None]
  - STAPHYLOCOCCAL INFECTION [None]
  - VOMITING [None]
